FAERS Safety Report 9829092 (Version 8)
Quarter: 2016Q1

REPORT INFORMATION
  Report Type: Spontaneous
  Country: DE (occurrence: DE)
  Receive Date: 20140119
  Receipt Date: 20160223
  Transmission Date: 20160526
  Serious: Yes (Hospitalization, Other)
  Sender: FDA-Public Use
  Company Number: DE-009507513-2010SP060308

PATIENT
  Age: 32 Year
  Sex: Female
  Weight: 78 kg

DRUGS (6)
  1. NUVARING [Suspect]
     Active Substance: ETHINYL ESTRADIOL\ETONOGESTREL
     Dosage: UNK, QM
     Route: 067
     Dates: start: 20160203
  2. NUVARING [Suspect]
     Active Substance: ETHINYL ESTRADIOL\ETONOGESTREL
     Indication: CONTRACEPTION
     Dosage: UNK
     Route: 067
     Dates: start: 2009, end: 201403
  3. URIDINE 5^-TRIPHOSPHATE TRISODIUM SALT DIHYDRATE [Concomitant]
  4. IBUPROFEN. [Concomitant]
     Active Substance: IBUPROFEN
     Indication: BACK PAIN
  5. CYTIDINE 5^-MONOPHOSPHATE DISODIUM SALT [Concomitant]
     Indication: BACK PAIN
  6. HYDROXOCOBALAMIN ACETATE. [Concomitant]
     Active Substance: HYDROXOCOBALAMIN ACETATE

REACTIONS (18)
  - Abdominal operation [Recovered/Resolved]
  - Pulpitis dental [Unknown]
  - Cervicectomy [Recovered/Resolved]
  - Abdominal pain upper [Unknown]
  - Conjunctivitis bacterial [Recovering/Resolving]
  - Myosclerosis [Unknown]
  - Spinal operation [Recovered/Resolved]
  - Inappropriate schedule of drug administration [Unknown]
  - Artificial crown procedure [Unknown]
  - Mental disorder [Unknown]
  - Nasopharyngitis [Unknown]
  - Spinal operation [Recovered/Resolved]
  - Intervertebral disc protrusion [Recovered/Resolved]
  - Immune system disorder [Unknown]
  - Metrorrhagia [Not Recovered/Not Resolved]
  - Diarrhoea [Unknown]
  - Headache [Not Recovered/Not Resolved]
  - Eczema [Not Recovered/Not Resolved]

NARRATIVE: CASE EVENT DATE: 20101110
